FAERS Safety Report 5310140-0 (Version None)
Quarter: 2007Q2

REPORT INFORMATION
  Report Type: 
  Country: None (occurrence: None)
  Receive Date: 20070427
  Receipt Date: 20070416
  Transmission Date: 20071010
  Serious: Yes (Hospitalization)
  Sender: FDA-Public Use
  Company Number: JP-ROCHE-488374

PATIENT
  Age: 26 Year
  Sex: Female
  Weight: 47 kg

DRUGS (7)
  1. RIVOTRIL [Suspect]
     Route: 051
     Dates: start: 20060719
  2. TAKEPRON [Suspect]
     Indication: REFLUX OESOPHAGITIS
     Route: 051
     Dates: start: 20060116
  3. URSO [Suspect]
     Indication: CHOLELITHIASIS
     Route: 051
     Dates: start: 20070220, end: 20070312
  4. LASIX [Suspect]
     Indication: RENAL FAILURE
     Route: 051
     Dates: start: 20060712
  5. ALDACTONE [Suspect]
     Indication: RENAL FAILURE
     Route: 051
     Dates: start: 20060705
  6. THYRADIN [Suspect]
     Route: 051
     Dates: start: 20060129
  7. RHUBARB [Suspect]
     Indication: CONSTIPATION
     Route: 051
     Dates: start: 20061208

REACTIONS (1)
  - DERMATITIS EXFOLIATIVE [None]
